FAERS Safety Report 4975029-5 (Version None)
Quarter: 2006Q2

REPORT INFORMATION
  Report Type: 
  Country: None (occurrence: None)
  Receive Date: 20060418
  Receipt Date: 20060410
  Transmission Date: 20061013
  Serious: Yes (Other)
  Sender: FDA-Public Use
  Company Number: CH-JNJFOC-20060402113

PATIENT
  Age: 41 Year
  Sex: Female
  Weight: 89 kg

DRUGS (4)
  1. RISPERDAL [Suspect]
     Route: 048
  2. RISPERDAL [Suspect]
     Indication: SCHIZOID PERSONALITY DISORDER
     Route: 048
  3. XANAX [Concomitant]
     Indication: SCHIZOID PERSONALITY DISORDER
     Route: 048
  4. ANAFRANIL [Concomitant]
     Indication: SCHIZOID PERSONALITY DISORDER
     Route: 048

REACTIONS (4)
  - BLOOD CHOLESTEROL INCREASED [None]
  - BLOOD GLUCOSE INCREASED [None]
  - HYPERTRIGLYCERIDAEMIA [None]
  - WEIGHT INCREASED [None]
